FAERS Safety Report 8785237 (Version 1)
Quarter: 2012Q4

REPORT INFORMATION
  Report Type: Spontaneous
  Country: IE (occurrence: None)
  Receive Date: 20120831
  Receipt Date: 20120831
  Transmission Date: 20130627
  Serious: Yes (Disabling, Other)
  Sender: FDA-Public Use
  Company Number: 2012080092

PATIENT
  Age: 52 Year
  Sex: Male

DRUGS (1)
  1. D-PENICILLAMINE [Suspect]
     Indication: WILSON^S DISEASE

REACTIONS (7)
  - Liver disorder [None]
  - Liver transplant [None]
  - Dysarthria [None]
  - Bradykinesia [None]
  - Cogwheel rigidity [None]
  - Iron deficiency anaemia [None]
  - Restless legs syndrome [None]
